FAERS Safety Report 5760312-6 (Version None)
Quarter: 2008Q2

REPORT INFORMATION
  Report Type: 
  Country: None (occurrence: None)
  Receive Date: 20080605
  Receipt Date: 20080529
  Transmission Date: 20081010
  Serious: Yes (Other)
  Sender: FDA-Public Use
  Company Number: JP-PFIZER INC-2008046121

PATIENT
  Age: 54 Year
  Sex: Male

DRUGS (5)
  1. XALATAN [Suspect]
     Indication: OPEN ANGLE GLAUCOMA
     Route: 031
     Dates: start: 20060324, end: 20080521
  2. ALEGYSAL [Concomitant]
     Route: 031
  3. LEVOFLOXACIN [Concomitant]
     Route: 031
  4. FLUMETHOLON [Concomitant]
     Route: 031
  5. TARIVIT [Concomitant]

REACTIONS (1)
  - EYELID PTOSIS [None]
